FAERS Safety Report 6555894 (Version 2)
Quarter: 2016Q1

REPORT INFORMATION
  Report Type: Spontaneous
  Country: US (occurrence: US)
  Receive Date: 20080219
  Receipt Date: 20160113
  Transmission Date: 20160526
  Serious: Yes (Death, Other)
  Sender: FDA-Public Use
  Company Number: US-BRISTOL-MYERS SQUIBB COMPANY-14077655

PATIENT
  Age: 2 Day
  Sex: Female

DRUGS (1)
  1. ABILIFY [Suspect]
     Active Substance: ARIPIPRAZOLE
     Indication: PRODUCT USED FOR UNKNOWN INDICATION
     Dosage: 30 MG, QD
     Route: 064
     Dates: start: 20070423, end: 20071215

REACTIONS (2)
  - Haemorrhage intracranial [Fatal]
  - Foetal exposure during pregnancy [Unknown]
